FAERS Safety Report 24539482 (Version 1)
Quarter: 2024Q4

REPORT INFORMATION
  Report Type: Spontaneous
  Country: US (occurrence: None)
  Receive Date: 20241022
  Receipt Date: 20241022
  Transmission Date: 20250115
  Serious: Yes (Hospitalization)
  Sender: Public
  Company Number: None

PATIENT
  Age: 77 Year
  Sex: Male

DRUGS (1)
  1. ERTAPENEM [Suspect]
     Active Substance: ERTAPENEM
     Indication: Infection
     Dosage: FREQUENCY : DAILY;?
     Route: 042
     Dates: start: 20240430, end: 20240509

REACTIONS (1)
  - Hallucination [None]

NARRATIVE: CASE EVENT DATE: 20240509
